FAERS Safety Report 8318700-X (Version None)
Quarter: 2012Q2

REPORT INFORMATION
  Report Type: 
  Country: None (occurrence: None)
  Receive Date: 20120427
  Receipt Date: 20120424
  Transmission Date: 20120825
  Serious: Yes (Hospitalization)
  Sender: FDA-Public Use
  Company Number: US-GILEAD-2012-0053987

PATIENT
  Sex: Female

DRUGS (6)
  1. FLOVENT [Concomitant]
  2. LETAIRIS [Suspect]
     Indication: PULMONARY HYPERTENSION
     Dosage: 5 MG, UNK
     Route: 048
     Dates: start: 20110816
  3. ALBUTEROL [Concomitant]
  4. TREPROSTINIL [Concomitant]
  5. LASIX [Concomitant]
  6. SILDENAFIL [Concomitant]

REACTIONS (1)
  - RESPIRATORY TRACT INFECTION VIRAL [None]
